FAERS Safety Report 18506312 (Version 7)
Quarter: 2025Q4

REPORT INFORMATION
  Report Type: Spontaneous
  Country: US (occurrence: US)
  Receive Date: 20201116
  Receipt Date: 20251110
  Transmission Date: 20260117
  Serious: No
  Sender: PFIZER
  Company Number: US-PFIZER INC-2020445420

PATIENT
  Age: 60 Year
  Sex: Female
  Weight: 63.5 kg

DRUGS (2)
  1. PREMARIN [Suspect]
     Active Substance: ESTROGENS, CONJUGATED
     Indication: Hormone replacement therapy
     Dosage: 0.625 MG
  2. PREMARIN [Suspect]
     Active Substance: ESTROGENS, CONJUGATED
     Dosage: 1.25 MG, DAILY (TAKE ONE TABLET (1.25 MG TOTAL) BY MOUTH IN THE MORNING)
     Route: 048
     Dates: start: 20240311

REACTIONS (2)
  - Hot flush [Recovering/Resolving]
  - Product dispensing error [Unknown]
